FAERS Safety Report 5680183-6 (Version None)
Quarter: 2008Q1

REPORT INFORMATION
  Report Type: 
  Country: None (occurrence: None)
  Receive Date: 20080326
  Receipt Date: 20080321
  Transmission Date: 20080703
  Serious: Yes (Hospitalization)
  Sender: FDA-Public Use
  Company Number: US-BRISTOL-MYERS SQUIBB COMPANY-14122923

PATIENT
  Age: 43 Year
  Sex: Female
  Weight: 130 kg

DRUGS (12)
  1. LOMUSTINE [Suspect]
     Indication: GLIOBLASTOMA MULTIFORME
     Dates: start: 20080131
  2. ACETAMINOPHEN [Concomitant]
     Dates: end: 20080130
  3. DEXAMETHASONE TAB [Concomitant]
     Dosage: 31JAN08-ONGOING
     Dates: start: 20080131
  4. FAMOTIDINE [Concomitant]
     Dates: end: 20080130
  5. PRINZIDE [Concomitant]
  6. LEVETIRACETAM [Concomitant]
  7. ONDANSETRON [Concomitant]
     Dosage: 30JAN08-ONGOING
     Dates: start: 20080130
  8. ZOLPIDEM TARTRATE [Concomitant]
     Dates: start: 20080103, end: 20080109
  9. LORAZEPAM [Concomitant]
     Dates: start: 20071225, end: 20080103
  10. INSULIN [Concomitant]
     Dates: start: 20080103
  11. SENNA [Concomitant]
     Dates: end: 20080130
  12. PEGFILGRASTIM [Concomitant]
     Dosage: SINGLE DOSE
     Dates: start: 20080305, end: 20080305

REACTIONS (1)
  - FEBRILE NEUTROPENIA [None]
